FAERS Safety Report 9531967 (Version 3)
Quarter: 2014Q2

REPORT INFORMATION
  Report Type: Spontaneous
  Country: US (occurrence: US)
  Receive Date: 20130918
  Receipt Date: 20140430
  Transmission Date: 20141212
  Serious: Yes (Hospitalization)
  Sender: FDA-Public Use
  Company Number: US-BAYER-2013-112625

PATIENT
  Age: 29 Year
  Sex: Female
  Weight: 49.89 kg

DRUGS (4)
  1. MIRENA [Suspect]
     Indication: CONTRACEPTION
     Dosage: 20 MCG/24HR, CONT
     Route: 015
     Dates: start: 20090629, end: 20110222
  2. BUPROPION [Concomitant]
     Dosage: 150 MG, [THREE TIMES A DAY]
     Route: 048
  3. METHADONE [Concomitant]
     Dosage: 75 MG, DAILY
     Route: 048
  4. ALDARA [Concomitant]
     Dosage: 3 TIMES PER WEEK
     Route: 061
     Dates: start: 20101222

REACTIONS (7)
  - Uterine perforation [None]
  - Injury [None]
  - Pain [None]
  - Emotional distress [None]
  - Depression [None]
  - Anxiety [None]
  - Device issue [None]
